FAERS Safety Report 10395992 (Version 1)
Quarter: 2014Q3

REPORT INFORMATION
  Report Type: Spontaneous
  Country: US (occurrence: None)
  Receive Date: 20140815
  Receipt Date: 20140815
  Transmission Date: 20150326
  Serious: No
  Sender: FDA-Public Use
  Company Number: None

PATIENT
  Age: 29 Year
  Sex: Female
  Weight: 47.63 kg

DRUGS (1)
  1. KENALOG [Suspect]
     Active Substance: TRIAMCINOLONE ACETONIDE

REACTIONS (6)
  - Injection site bruising [None]
  - Aphthous stomatitis [None]
  - Menorrhagia [None]
  - Rash [None]
  - Injection site scar [None]
  - Swelling [None]

NARRATIVE: CASE EVENT DATE: 20140401
